FAERS Safety Report 8901799 (Version 1)
Quarter: 2012Q4

REPORT INFORMATION
  Report Type: Spontaneous
  Country: US (occurrence: None)
  Receive Date: 20121106
  Receipt Date: 20121106
  Transmission Date: 20130627
  Serious: Yes (Hospitalization)
  Sender: FDA-Public Use
  Company Number: DSA_60704_2012

PATIENT
  Age: 50 Year
  Sex: Female

DRUGS (10)
  1. FLUOROURACIL [Suspect]
     Indication: COLON CANCER
     Route: 040
  2. FLUOROURACIL [Suspect]
     Indication: COLON CANCER
     Dosage: (not otherwise specified)
     Route: 042
  3. FLUOROURACIL [Suspect]
     Indication: COLON CANCER
     Route: 040
  4. FLUOROURACIL [Suspect]
     Indication: COLON CANCER
     Dosage: (not otherwise specified)
     Route: 042
  5. OXALIPLATIN [Suspect]
     Indication: COLON CANCER
     Dosage: (every cycle (not otherwise specified))
     Route: 042
  6. OXALIPLATIN [Suspect]
     Indication: COLON CANCER
     Dosage: (every cycle (not otherwise specifeid))
     Route: 042
  7. LEUCOVORIN [Suspect]
     Indication: COLON CANCER
     Dosage: (every cycle (not otherwise specified))
     Route: 042
  8. LEUCOVORIN [Suspect]
     Indication: COLON CANCER
     Dosage: (every cycle (not otherwise specified))
     Route: 042
  9. BEVACIZUMAB [Suspect]
     Indication: COLON CANCER
  10. BEVACIZUMAB [Suspect]
     Indication: COLON CANCER

REACTIONS (20)
  - Febrile neutropenia [None]
  - Palmar-plantar erythrodysaesthesia syndrome [None]
  - Mucosal inflammation [None]
  - Dysphagia [None]
  - Alopecia [None]
  - Paraesthesia [None]
  - Photophobia [None]
  - Tunnel vision [None]
  - Gait disturbance [None]
  - Toxicity to various agents [None]
  - Asthenia [None]
  - Bedridden [None]
  - Dysarthria [None]
  - Dysphonia [None]
  - Throat tightness [None]
  - Ataxia [None]
  - Cerebellar syndrome [None]
  - Leukoencephalopathy [None]
  - Aphasia [None]
  - Memory impairment [None]
